FAERS Safety Report 10496467 (Version 2)
Quarter: 2019Q3

REPORT INFORMATION
  Report Type: Spontaneous
  Country: CA (occurrence: CA)
  Receive Date: 20141004
  Receipt Date: 20190814
  Transmission Date: 20191004
  Serious: Yes (Other)
  Sender: FDA-Public Use
  Company Number: CA-AUROBINDO-AUR-APL-2014-10431

PATIENT

DRUGS (4)
  1. PERPHENAZINE. [Concomitant]
     Active Substance: PERPHENAZINE
     Indication: PRODUCT USED FOR UNKNOWN INDICATION
     Dosage: UNK
     Route: 065
  2. ABILIFY [Concomitant]
     Active Substance: ARIPIPRAZOLE
     Indication: PRODUCT USED FOR UNKNOWN INDICATION
     Dosage: UNK
     Route: 065
  3. MIRTAZAPINE OD TABLETS 45 MG [Suspect]
     Active Substance: MIRTAZAPINE
     Indication: AUTISM SPECTRUM DISORDER
     Dosage: 45 MG, ONCE A DAY
     Route: 065
  4. MIRTAZAPINE OD TABLETS 45 MG [Suspect]
     Active Substance: MIRTAZAPINE
     Dosage: 45 MG, ONCE A DAY
     Route: 065

REACTIONS (3)
  - Product substitution issue [Recovered/Resolved]
  - Psychotic disorder [Recovered/Resolved]
  - Depression [Recovered/Resolved]
